FAERS Safety Report 15374581 (Version 1)
Quarter: 2018Q3

REPORT INFORMATION
  Report Type: Spontaneous
  Country: US (occurrence: US)
  Receive Date: 20180912
  Receipt Date: 20180912
  Transmission Date: 20181010
  Serious: No
  Sender: FDA-Public Use
  Company Number: US-009507513-1808USA012420

PATIENT
  Age: 48 Year
  Sex: Male

DRUGS (1)
  1. TEMODAR [Suspect]
     Active Substance: TEMOZOLOMIDE
     Indication: METASTASES TO MENINGES
     Dosage: 150 MG/M2, UNK (FOR 5 DAYS)
     Route: 048

REACTIONS (1)
  - Off label use [Unknown]
